FAERS Safety Report 7160110 (Version 2)
Quarter: 2013Q3

REPORT INFORMATION
  Report Type: Spontaneous
  Country: None (occurrence: None)
  Receive Date: 20091014
  Receipt Date: 20130708
  Transmission Date: 20140515
  Serious: Yes (Hospitalization)
  Sender: FDA-Public Use
  Company Number: AUR-APL-2009-00773

PATIENT
  Age: 79 Year
  Sex: Male

DRUGS (2)
  1. HYDROCHLOROTHIAZIDE [Suspect]
     Indication: PRODUCT USED FOR UNKNOWN INDICATION
  2. OXCARBAZEPINE [Suspect]
     Indication: PRODUCT USED FOR UNKNOWN INDICATION

REACTIONS (6)
  - Inappropriate antidiuretic hormone secretion [None]
  - Confusional state [None]
  - Dizziness [None]
  - Stupor [None]
  - Gait disturbance [None]
  - Vomiting [None]
